FAERS Safety Report 4796726-0 (Version None)
Quarter: 2005Q4

REPORT INFORMATION
  Report Type: 
  Country: None (occurrence: None)
  Receive Date: 20051007
  Receipt Date: 20050907
  Transmission Date: 20060501
  Serious: Yes (Other)
  Sender: FDA-Public Use
  Company Number: 2005BH002076

PATIENT

DRUGS (2)
  1. DEXAMETHASONE [Suspect]
     Indication: STEM CELL TRANSPLANT
  2. THALIDOMIDE (THALIDOMIDE) [Suspect]
     Indication: STEM CELL TRANSPLANT

REACTIONS (2)
  - DEEP VEIN THROMBOSIS [None]
  - PULMONARY EMBOLISM [None]
